FAERS Safety Report 11772314 (Version 3)
Quarter: 2015Q4

REPORT INFORMATION
  Report Type: Report from Study
  Country: HK (occurrence: HK)
  Receive Date: 20151124
  Receipt Date: 20151223
  Transmission Date: 20160304
  Serious: Yes (Other)
  Sender: FDA-Public Use
  Company Number: HK-BAYER-2015-400405

PATIENT
  Sex: Female

DRUGS (2)
  1. STIVARGA [Suspect]
     Active Substance: REGORAFENIB
     Dosage: UNK
     Route: 048
     Dates: start: 20150828, end: 2015
  2. STIVARGA [Suspect]
     Active Substance: REGORAFENIB
     Dosage: 80 MG, QD
     Route: 048
     Dates: start: 20150731, end: 20150820

REACTIONS (17)
  - Metastases to large intestine [Not Recovered/Not Resolved]
  - Rash [Recovered/Resolved]
  - Palmoplantar keratoderma [Recovered/Resolved]
  - Dry skin [Recovered/Resolved]
  - Peripheral swelling [Not Recovered/Not Resolved]
  - Blister [Recovered/Resolved]
  - Peripheral swelling [Recovered/Resolved]
  - Erythema [Recovered/Resolved]
  - Skin exfoliation [Recovered/Resolved]
  - Dysphonia [Recovered/Resolved]
  - Pain in extremity [Not Recovered/Not Resolved]
  - Blister [Recovered/Resolved]
  - Pain in extremity [Not Recovered/Not Resolved]
  - Facial pain [Recovered/Resolved]
  - Metastases to liver [Not Recovered/Not Resolved]
  - Pain in extremity [Recovered/Resolved]
  - Herpes zoster [Recovered/Resolved]

NARRATIVE: CASE EVENT DATE: 2015
